FAERS Safety Report 14621088 (Version 3)
Quarter: 2024Q4

REPORT INFORMATION
  Report Type: Spontaneous
  Country: IT (occurrence: IT)
  Receive Date: 20180310
  Receipt Date: 20241107
  Transmission Date: 20250115
  Serious: Yes (Other)
  Sender: AUROBINDO
  Company Number: IT-MINISAL02-440290

PATIENT
  Age: 81 Year
  Sex: Female

DRUGS (5)
  1. BISOPROLOL FUMARATE [Suspect]
     Active Substance: BISOPROLOL FUMARATE
     Indication: Medication error
     Dosage: 1 DOSAGE FORM, TOTAL
     Route: 048
     Dates: start: 20170826, end: 20170826
  2. PERINDOPRIL [Suspect]
     Active Substance: PERINDOPRIL
     Indication: Medication error
     Dosage: 1 DOSAGE FORM, TOTAL
     Route: 048
     Dates: start: 20170826, end: 20170826
  3. LASIX-RESERPINE [Concomitant]
     Indication: Product used for unknown indication
     Dosage: UNK
     Route: 048
  4. BUTHIAZIDE\CANRENOATE POTASSIUM [Concomitant]
     Active Substance: BUTHIAZIDE\CANRENOATE POTASSIUM
     Indication: Product used for unknown indication
     Dosage: UNK
     Route: 048
  5. EDOXABAN TOSYLATE [Concomitant]
     Active Substance: EDOXABAN TOSYLATE
     Indication: Product used for unknown indication
     Dosage: UNK
     Route: 048

REACTIONS (2)
  - Syncope [Recovering/Resolving]
  - Medication error [Recovering/Resolving]

NARRATIVE: CASE EVENT DATE: 20170826
